FAERS Safety Report 9135497 (Version 1)
Quarter: 2013Q1

REPORT INFORMATION
  Report Type: Spontaneous
  Country: IT (occurrence: IT)
  Receive Date: 20130304
  Receipt Date: 20130304
  Transmission Date: 20140127
  Serious: Yes (Hospitalization)
  Sender: FDA-Public Use
  Company Number: PHHY2013IT019011

PATIENT
  Age: 36 Year
  Sex: Female

DRUGS (4)
  1. LORAZEPAM [Suspect]
     Indication: DRUG ABUSE
     Dosage: 5 DF, TOTAL
     Route: 048
     Dates: start: 20130114, end: 20130114
  2. ZOLPIDEM [Suspect]
     Indication: DRUG ABUSE
     Dosage: 5 DF, TOTAL
     Route: 048
     Dates: start: 20130114, end: 20130114
  3. CITALOPRAM [Suspect]
     Indication: DRUG ABUSE
     Dosage: 5 DF, TOTAL
     Route: 048
     Dates: start: 20130114, end: 20130114
  4. DEPAKIN [Suspect]
     Indication: DRUG ABUSE
     Dosage: 5 DF, TOTAL
     Route: 048
     Dates: start: 20130114, end: 20130114

REACTIONS (2)
  - Sopor [Unknown]
  - Mydriasis [Unknown]
